FAERS Safety Report 8937955 (Version 4)
Quarter: 2013Q1

REPORT INFORMATION
  Report Type: Spontaneous
  Country: DK (occurrence: DK)
  Receive Date: 20121130
  Receipt Date: 20130129
  Transmission Date: 20140127
  Serious: Yes (Death, Other)
  Sender: FDA-Public Use
  Company Number: DK-CELGENEUS-044-21660-12112793

PATIENT
  Sex: Female

DRUGS (9)
  1. ABRAXANE [Suspect]
     Indication: BREAST CANCER METASTATIC
     Route: 041
  2. HERCEPTIN [Suspect]
     Indication: BREAST CANCER
     Route: 065
  3. XELODA [Suspect]
     Indication: BREAST CANCER
     Route: 065
  4. HALAVEN [Suspect]
     Indication: BREAST CANCER
     Route: 065
  5. VINORELBINE [Suspect]
     Indication: BREAST CANCER
     Route: 065
  6. LAPATINIB [Suspect]
     Indication: BREAST CANCER
     Route: 065
  7. LETROZOLE [Suspect]
     Indication: BREAST CANCER
     Route: 065
  8. EPIRUBICIN [Concomitant]
     Indication: PRODUCT USED FOR UNKNOWN INDICATION
     Route: 065
  9. CYCLOPHOSPHAMIDE [Concomitant]
     Indication: PRODUCT USED FOR UNKNOWN INDICATION
     Route: 065

REACTIONS (5)
  - Breast cancer metastatic [Fatal]
  - Superior vena cava syndrome [Unknown]
  - Fracture [Unknown]
  - Tenderness [Unknown]
  - Sensory disturbance [Unknown]
